FAERS Safety Report 5136679-9 (Version None)
Quarter: 2006Q4

REPORT INFORMATION
  Report Type: 
  Country: None (occurrence: None)
  Receive Date: 20061027
  Receipt Date: 20061004
  Transmission Date: 20070319
  Serious: Yes (Hospitalization)
  Sender: FDA-Public Use
  Company Number: JP-MERCK-0610USA03608

PATIENT
  Age: 71 Year
  Sex: Male
  Weight: 65 kg

DRUGS (12)
  1. PRIMAXIN [Suspect]
     Indication: ABSCESS LIMB
     Route: 042
     Dates: start: 20060925, end: 20061002
  2. PRIMAXIN [Suspect]
     Indication: LOCALISED INFECTION
     Route: 042
     Dates: start: 20060925, end: 20061002
  3. DALACIN S [Suspect]
     Indication: ABSCESS LIMB
     Route: 042
     Dates: start: 20060924, end: 20061002
  4. DALACIN S [Suspect]
     Indication: LOCALISED INFECTION
     Route: 042
     Dates: start: 20060924, end: 20061002
  5. WARFARIN POTASSIUM [Concomitant]
     Route: 048
  6. ASPIRIN [Concomitant]
     Route: 048
  7. LASIX [Concomitant]
     Route: 048
  8. HERBESSER [Concomitant]
     Route: 048
  9. PEPCID [Concomitant]
     Route: 048
  10. SLONNON [Concomitant]
     Route: 042
     Dates: start: 20060925
  11. MODACIN [Concomitant]
     Route: 042
     Dates: start: 20060924, end: 20060924
  12. POLLAKISU [Concomitant]
     Route: 048

REACTIONS (2)
  - ECZEMA [None]
  - PRURITUS [None]
